FAERS Safety Report 12458176 (Version 1)
Quarter: 2016Q2

REPORT INFORMATION
  Report Type: Spontaneous
  Country: US (occurrence: US)
  Receive Date: 20160613
  Receipt Date: 20160613
  Transmission Date: 20160815
  Serious: No
  Sender: FDA-Public Use
  Company Number: US-009507513-1605USA009625

PATIENT
  Sex: Female
  Weight: 91.61 kg

DRUGS (1)
  1. NEXPLANON [Suspect]
     Active Substance: ETONOGESTREL
     Dosage: UNK
     Route: 059
     Dates: start: 20160104

REACTIONS (2)
  - Vaginal haemorrhage [Not Recovered/Not Resolved]
  - Device breakage [Not Recovered/Not Resolved]
